FAERS Safety Report 9752265 (Version 1)
Quarter: 2013Q4

REPORT INFORMATION
  Report Type: Spontaneous
  Country: CZ (occurrence: None)
  Receive Date: 20131211
  Receipt Date: 20131211
  Transmission Date: 20140711
  Serious: Yes (Other)
  Sender: FDA-Public Use
  Company Number: 2013AP010251

PATIENT
  Sex: Male

DRUGS (7)
  1. GABAPENTIN [Suspect]
     Indication: NEURALGIA
  2. DOCETAXEL (DOCETAXEL) [Suspect]
     Indication: PROSTATE CANCER METASTATIC
  3. AMITRIPTYLINE (AMITRIPTYLINE) [Suspect]
     Indication: NEURALGIA
     Route: 048
  4. CYPROTERONE ACETATE [Concomitant]
  5. LEUPRORELIN ACETATE [Concomitant]
  6. PREDNISONE (PREDNISONE) [Concomitant]
  7. FENTANYL (FENTANYL) [Concomitant]

REACTIONS (12)
  - Gastrointestinal disorder [None]
  - Hypertension [None]
  - Visual acuity reduced [None]
  - Orthostatic hypotension [None]
  - Depression [None]
  - Paraesthesia [None]
  - Paraesthesia [None]
  - Pain [None]
  - Asthenia [None]
  - Hypersensitivity [None]
  - Body temperature fluctuation [None]
  - Quality of life decreased [None]
